FAERS Safety Report 4684912-X (Version None)
Quarter: 2005Q2

REPORT INFORMATION
  Report Type: 
  Country: None (occurrence: None)
  Receive Date: 20050606
  Receipt Date: 20050606
  Transmission Date: 20051028
  Serious: Yes (Other)
  Sender: FDA-Public Use
  Company Number: None

PATIENT
  Sex: Female

DRUGS (2)
  1. AREDIA [Suspect]
     Indication: BONE DISORDER
     Dosage: INFUSION
  2. FOSAMAX [Suspect]
     Indication: BONE DISORDER
     Dosage: P.O.
     Route: 048

REACTIONS (1)
  - OSTEONECROSIS [None]
